FAERS Safety Report 7081479-6 (Version None)
Quarter: 2010Q4

REPORT INFORMATION
  Report Type: 
  Country: None (occurrence: None)
  Receive Date: 20101025
  Receipt Date: 20101008
  Transmission Date: 20110411
  Serious: Yes (Hospitalization)
  Sender: FDA-Public Use
  Company Number: 09-AUR-09684

PATIENT
  Age: 69 Year
  Sex: Male
  Weight: 90 kg

DRUGS (7)
  1. AMLODIPINE [Suspect]
     Indication: CORONARY ARTERY DISEASE
     Dosage: 5MG - BID - ORAL
     Route: 048
  2. HYDROCHLOROTHIAZIDE [Suspect]
     Indication: CORONARY ARTERY DISEASE
     Dosage: 25MG - DAILY - ORAL
     Route: 048
  3. TAMSULOSIN CAPSULE [Suspect]
     Indication: BENIGN PROSTATIC HYPERPLASIA
     Dosage: 0.4MG - DAILY - ORAL
     Route: 048
     Dates: start: 20080416, end: 20080417
  4. MOLSIDOMINE [Suspect]
     Indication: CORONARY ARTERY DISEASE
     Dosage: 8MG - DAILY - ORAL
     Route: 048
  5. PROVAS [Suspect]
     Indication: CORONARY ARTERY DISEASE
     Dosage: 160MG - BID - ORAL
     Route: 048
  6. GODAMED [Concomitant]
  7. SIMVASTATIN [Concomitant]

REACTIONS (5)
  - CARDIAC HYPERTROPHY [None]
  - DIZZINESS [None]
  - HEADACHE [None]
  - HYPERTENSION [None]
  - SYNCOPE [None]
